FAERS Safety Report 15458840 (Version 1)
Quarter: 2018Q3

REPORT INFORMATION
  Report Type: Spontaneous
  Country: US (occurrence: US)
  Receive Date: 20180928
  Receipt Date: 20180928
  Transmission Date: 20181010
  Serious: Yes (Hospitalization)
  Sender: FDA-Public Use
  Company Number: None

PATIENT
  Age: 16 Year
  Sex: Female

DRUGS (1)
  1. PULMOZYME [Suspect]
     Active Substance: DORNASE ALFA
     Indication: CEREBRAL PALSY
     Dosage: 1 VIAL DAILY INHALED
     Route: 055
     Dates: start: 20180202

REACTIONS (1)
  - Septic shock [None]

NARRATIVE: CASE EVENT DATE: 2018
